FAERS Safety Report 7360884-4 (Version None)
Quarter: 2011Q1

REPORT INFORMATION
  Report Type: 
  Country: None (occurrence: None)
  Receive Date: 20110318
  Receipt Date: 20110314
  Transmission Date: 20110831
  Serious: Yes (Hospitalization)
  Sender: FDA-Public Use
  Company Number: ES-B.I. PHARMACEUTICALS,INC./RIDGEFIELD-2010-DE-01093GD

PATIENT

DRUGS (1)
  1. TELMISARTAN [Suspect]

REACTIONS (1)
  - HYPONATRAEMIA [None]
